FAERS Safety Report 10399260 (Version 1)
Quarter: 2014Q3

REPORT INFORMATION
  Report Type: Spontaneous
  Country: JP (occurrence: None)
  Receive Date: 20140819
  Receipt Date: 20140819
  Transmission Date: 20150326
  Serious: Yes (Other)
  Sender: FDA-Public Use
  Company Number: 2014-4325

PATIENT
  Age: 8 Year
  Sex: Male

DRUGS (1)
  1. BOTULINUM TOXIN [Suspect]
     Active Substance: BOTULINUM TOXIN TYPE A
     Indication: DYSTONIA

REACTIONS (3)
  - Aspiration [None]
  - Cervical myelopathy [None]
  - Feeding disorder [None]
